FAERS Safety Report 7949570-7 (Version None)
Quarter: 2011Q4

REPORT INFORMATION
  Report Type: 
  Country: None (occurrence: None)
  Receive Date: 20111130
  Receipt Date: 20111114
  Transmission Date: 20120403
  Serious: Yes (Other)
  Sender: FDA-Public Use
  Company Number: US-BAYER-2011-111249

PATIENT
  Age: 42 Year
  Sex: Female

DRUGS (1)
  1. YASMIN [Suspect]
     Dosage: UNK
     Route: 048
     Dates: start: 20071201, end: 20090501

REACTIONS (7)
  - PULMONARY EMBOLISM [None]
  - INJURY [None]
  - FEAR OF DEATH [None]
  - DEPRESSION [None]
  - NERVOUSNESS [None]
  - PAIN [None]
  - EMOTIONAL DISTRESS [None]
